FAERS Safety Report 16119238 (Version 1)
Quarter: 2019Q1

REPORT INFORMATION
  Report Type: Spontaneous
  Country: FR (occurrence: FR)
  Receive Date: 20190326
  Receipt Date: 20190326
  Transmission Date: 20190418
  Serious: Yes (Hospitalization, Other)
  Sender: FDA-Public Use
  Company Number: FR-PFIZER INC-2019123620

PATIENT
  Age: 7 Year
  Sex: Male
  Weight: 24 kg

DRUGS (4)
  1. COSMEGEN [Suspect]
     Active Substance: DACTINOMYCIN
     Indication: ALVEOLAR RHABDOMYOSARCOMA
     Dosage: 1.4 MG, EVERY 3 WEEKS (EVERY 21 DAYS)
     Route: 041
     Dates: start: 20160429, end: 20160701
  2. VINCRISTINE SULFATE. [Suspect]
     Active Substance: VINCRISTINE SULFATE
     Indication: ALVEOLAR RHABDOMYOSARCOMA
     Dosage: 2.8 MG, EVERY 3 WEEKS (EVERY 21 DAYS)
     Route: 041
     Dates: start: 20160429, end: 20160701
  3. DOXORUBICIN ACCORD [Suspect]
     Active Substance: DOXORUBICIN HYDROCHLORIDE
     Indication: ALVEOLAR RHABDOMYOSARCOMA
     Dosage: 56 MG, EVERY 3 WEEKS (EVERY 21 DAYS)
     Route: 041
     Dates: start: 20160429, end: 20160702
  4. IFOSFAMIDE EG [Suspect]
     Active Substance: IFOSFAMIDE
     Indication: ALVEOLAR RHABDOMYOSARCOMA
     Dosage: 5440 MG, EVERY 3 WEEKS (EVERY 21 DAYS)
     Route: 041
     Dates: start: 20160429, end: 20160702

REACTIONS (2)
  - Febrile bone marrow aplasia [Recovered/Resolved]
  - Sepsis [Recovered/Resolved]

NARRATIVE: CASE EVENT DATE: 201606
